FAERS Safety Report 7913917-8 (Version None)
Quarter: 2011Q4

REPORT INFORMATION
  Report Type: 
  Country: None (occurrence: None)
  Receive Date: 20111115
  Receipt Date: 20111109
  Transmission Date: 20120403
  Serious: Yes (Death)
  Sender: FDA-Public Use
  Company Number: FR-PFIZER INC-2011139368

PATIENT
  Age: 59 Year
  Sex: Male

DRUGS (6)
  1. ATORVASTATIN CALCIUM [Suspect]
     Dosage: 10 MG, 1X/DAY
     Route: 048
     Dates: start: 20070723
  2. METFORMIN HCL [Suspect]
     Dosage: 850 MG, 3X/DAY
     Route: 048
     Dates: start: 20070723
  3. MEDIATOR [Concomitant]
     Indication: TYPE 2 DIABETES MELLITUS
     Dosage: UNK
     Route: 048
     Dates: start: 20090717, end: 20100130
  4. PLAVIX [Suspect]
     Dosage: 75 MG, 1X/DAY
     Route: 048
     Dates: start: 20070723
  5. RAMIPRIL [Suspect]
     Dosage: 5 MG, 1X/DAY
     Route: 048
     Dates: start: 20070723
  6. IPERTEN [Suspect]
     Dosage: 10 MG, 1X/DAY
     Route: 048
     Dates: start: 20070723

REACTIONS (4)
  - CONGESTIVE CARDIOMYOPATHY [None]
  - CORONARY ARTERY DISEASE [None]
  - CARDIAC FAILURE [None]
  - ARTERIOSCLEROSIS CORONARY ARTERY [None]
